FAERS Safety Report 23601285 (Version 2)
Quarter: 2024Q1

REPORT INFORMATION
  Report Type: Spontaneous
  Country: US (occurrence: US)
  Receive Date: 20240306
  Receipt Date: 20240328
  Transmission Date: 20240409
  Serious: Yes (Other)
  Sender: FDA-Public Use
  Company Number: US-Calliditas-2024CAL00314

PATIENT
  Age: 32 Year
  Sex: Female

DRUGS (1)
  1. TARPEYO [Suspect]
     Active Substance: BUDESONIDE
     Indication: IgA nephropathy
     Dosage: 16 MG (4 MG CAPSULES) ONCE DAILY
     Route: 048
     Dates: start: 20230408

REACTIONS (5)
  - Illness [Unknown]
  - Product dose omission issue [Unknown]
  - Fatigue [Unknown]
  - Blood potassium increased [Unknown]
  - Chronic kidney disease [Unknown]
